FAERS Safety Report 6906374-1 (Version None)
Quarter: 2010Q3

REPORT INFORMATION
  Report Type: 
  Country: None (occurrence: None)
  Receive Date: 20100804
  Receipt Date: 20100727
  Transmission Date: 20110219
  Serious: Yes (Life-Threatening, Disabling)
  Sender: FDA-Public Use
  Company Number: A0872529A

PATIENT
  Age: 28 Year
  Sex: Male

DRUGS (2)
  1. ZOVIRAX [Suspect]
     Dosage: 800MG THREE TIMES PER DAY
     Route: 048
     Dates: start: 20100721, end: 20100725
  2. NO CONCURRENT MEDICATION [Concomitant]

REACTIONS (3)
  - DRUG HYPERSENSITIVITY [None]
  - ORAL HERPES [None]
  - SWOLLEN TONGUE [None]
